FAERS Safety Report 10015891 (Version 1)
Quarter: 2014Q1

REPORT INFORMATION
  Report Type: Spontaneous
  Country: GB (occurrence: GB)
  Receive Date: 20140317
  Receipt Date: 20140317
  Transmission Date: 20141002
  Serious: Yes (Disabling, Other)
  Sender: FDA-Public Use
  Company Number: GB-GLAXOSMITHKLINE-B0976715A

PATIENT
  Sex: Female

DRUGS (2)
  1. CLENIL MODULITE [Suspect]
     Indication: PRODUCT USED FOR UNKNOWN INDICATION
     Route: 055
  2. BENZYDAMINE [Concomitant]

REACTIONS (5)
  - Spinal disorder [Unknown]
  - Movement disorder [Unknown]
  - Loss of control of legs [Unknown]
  - Pain in extremity [Unknown]
  - Mouth haemorrhage [Unknown]
